FAERS Safety Report 6894924-3 (Version None)
Quarter: 2010Q3

REPORT INFORMATION
  Report Type: 
  Country: None (occurrence: None)
  Receive Date: 20100802
  Receipt Date: 20100722
  Transmission Date: 20110219
  Serious: Yes (Hospitalization)
  Sender: FDA-Public Use
  Company Number: US-SANOFI-AVENTIS-2010SA024000

PATIENT
  Age: 73 Year
  Sex: Female
  Weight: 131 kg

DRUGS (9)
  1. LANTUS [Suspect]
     Indication: DIABETES MELLITUS
     Dosage: DOSE:22 UNIT(S)
     Route: 058
  2. TOPROL-XL [Concomitant]
     Dosage: ONE A DAY
  3. CELEBREX [Concomitant]
  4. TRICOR [Concomitant]
     Dosage: ONE A DAY
  5. PLAVIX [Concomitant]
  6. AMLODIPINE [Concomitant]
  7. SYNTHROID [Concomitant]
  8. DIOVAN [Concomitant]
  9. OXYCONTIN [Concomitant]

REACTIONS (4)
  - GALLBLADDER DISORDER [None]
  - LOSS OF CONSCIOUSNESS [None]
  - LOWER LIMB FRACTURE [None]
  - UPPER LIMB FRACTURE [None]
